FAERS Safety Report 24865161 (Version 1)
Quarter: 2025Q1

REPORT INFORMATION
  Report Type: Other
  Country: US (occurrence: US)
  Receive Date: 20250121
  Receipt Date: 20250121
  Transmission Date: 20250409
  Serious: Yes (Hospitalization)
  Sender: ANI
  Company Number: US-ANIPHARMA-015399

PATIENT
  Age: 69 Year
  Sex: Female

DRUGS (13)
  1. LORAZEPAM [Suspect]
     Active Substance: LORAZEPAM
     Indication: Bipolar disorder
  2. LITHIUM [Concomitant]
     Active Substance: LITHIUM
     Indication: Bipolar disorder
  3. HERBALS\MITRAGYNINE [Concomitant]
     Active Substance: HERBALS\MITRAGYNINE
     Indication: Toothache
  4. QUETIAPINE [Concomitant]
     Active Substance: QUETIAPINE
     Indication: Mania
  5. ARIPIPRAZOLE [Concomitant]
     Active Substance: ARIPIPRAZOLE
     Indication: Mania
  6. MEMANTINE [Concomitant]
     Active Substance: MEMANTINE
     Indication: Product used for unknown indication
  7. DICYCLOMINE HYDROCHLORIDE [Concomitant]
     Active Substance: DICYCLOMINE HYDROCHLORIDE
     Indication: Abdominal discomfort
  8. LOPERAMIDE [Concomitant]
     Active Substance: LOPERAMIDE
     Indication: Diarrhoea
  9. IBUPROFEN [Concomitant]
     Active Substance: IBUPROFEN
     Indication: Bone pain
  10. HYDROXYZINE [Concomitant]
     Active Substance: HYDROXYZINE HYDROCHLORIDE
     Indication: Anxiety
  11. ARIPIPRAZOLE [Concomitant]
     Active Substance: ARIPIPRAZOLE
     Indication: Psychotic symptom
  12. QUETIAPINE [Concomitant]
     Active Substance: QUETIAPINE
     Indication: Psychotic symptom
  13. IBUPROFEN [Concomitant]
     Active Substance: IBUPROFEN
     Indication: Arthralgia

REACTIONS (1)
  - Treatment noncompliance [Unknown]
